FAERS Safety Report 16149930 (Version 6)
Quarter: 2020Q3

REPORT INFORMATION
  Report Type: Spontaneous
  Country: AU (occurrence: AU)
  Receive Date: 20190402
  Receipt Date: 20200702
  Transmission Date: 20201102
  Serious: Yes (Other)
  Sender: FDA-Public Use
  Company Number: GB-ELI_LILLY_AND_COMPANY-GB201904001097

PATIENT
  Age: 20 Year
  Sex: Male

DRUGS (17)
  1. OLANZAPINE. [Suspect]
     Active Substance: OLANZAPINE
     Dosage: 10 MG, DAILY (10 MG, QD)
     Route: 065
  2. CLONAZEPAM. [Suspect]
     Active Substance: CLONAZEPAM
     Dosage: 0.5 MG, DAILY (0.5 MG, QD)
     Route: 065
     Dates: start: 201812
  3. CLOZARIL [Suspect]
     Active Substance: CLOZAPINE
     Dosage: 206.25 MG, UNKNOWN
     Route: 048
     Dates: start: 20190702
  4. CLONAZEPAM. [Suspect]
     Active Substance: CLONAZEPAM
     Indication: PRODUCT USED FOR UNKNOWN INDICATION
     Dosage: 4 MG, DAILY (2 MILLIGRAM, BID)
     Route: 065
  5. CLOZARIL [Suspect]
     Active Substance: CLOZAPINE
     Dosage: 250 MG, DAILY (250 MG, QD)
     Route: 048
     Dates: start: 20181211, end: 20181228
  6. CLONAZEPAM. [Suspect]
     Active Substance: CLONAZEPAM
     Dosage: 1 MG, DAILY (1 MG, QD)
     Route: 065
     Dates: start: 201812
  7. OLANZAPINE. [Suspect]
     Active Substance: OLANZAPINE
     Dosage: 20 MG, DAILY (20 MG, QD)
     Route: 065
  8. ABILIFY MAINTENA [Suspect]
     Active Substance: ARIPIPRAZOLE
     Indication: SCHIZOPHRENIA
     Dosage: UNK UNK, UNKNOWN
     Route: 030
  9. OLANZAPINE. [Suspect]
     Active Substance: OLANZAPINE
     Indication: SCHIZOPHRENIA
     Dosage: UNK, UNKNOWN
     Route: 065
  10. ARIPIPRAZOLE. [Suspect]
     Active Substance: ARIPIPRAZOLE
     Indication: SCHIZOPHRENIA
     Dosage: UNK UNK, UNKNOWN
     Route: 065
  11. CLONAZEPAM. [Suspect]
     Active Substance: CLONAZEPAM
     Dosage: 1 MG, DAILY (1 MG, QD)
     Route: 065
     Dates: start: 2018
  12. OLANZAPINE. [Suspect]
     Active Substance: OLANZAPINE
     Dosage: 2 MG, DAILY (1 MILLIGRAM, BID)
     Dates: start: 201812
  13. OLANZAPINE. [Suspect]
     Active Substance: OLANZAPINE
     Dosage: 2 MG, DAILY (1 MILLIGRAM, BID)
     Dates: start: 2018
  14. ARIPIPRAZOLE. [Suspect]
     Active Substance: ARIPIPRAZOLE
     Dosage: UNK UNK, UNKNOWN
     Route: 065
  15. CLOZARIL [Suspect]
     Active Substance: CLOZAPINE
     Indication: SCHIZOPHRENIA
     Dosage: 300 MG, DAILY
     Route: 048
     Dates: start: 2018
  16. CLOZARIL [Suspect]
     Active Substance: CLOZAPINE
     Dosage: 300 MG, DAILY (300 MG, QD)
     Route: 048
     Dates: start: 20181203
  17. CLOZARIL [Suspect]
     Active Substance: CLOZAPINE
     Dosage: UNK UNK, UNKNOWN
     Route: 048
     Dates: start: 20181205

REACTIONS (9)
  - Drug ineffective [Unknown]
  - Red cell distribution width decreased [Not Recovered/Not Resolved]
  - C-reactive protein increased [Not Recovered/Not Resolved]
  - Mental impairment [Unknown]
  - Viral upper respiratory tract infection [Recovered/Resolved]
  - C-reactive protein increased [Not Recovered/Not Resolved]
  - Myocarditis [Unknown]
  - Red cell distribution width decreased [Unknown]
  - Myocarditis [Recovering/Resolving]

NARRATIVE: CASE EVENT DATE: 2018
